FAERS Safety Report 4883461-3 (Version None)
Quarter: 2006Q1

REPORT INFORMATION
  Report Type: 
  Country: None (occurrence: None)
  Receive Date: 20060118
  Receipt Date: 20051005
  Transmission Date: 20060701
  Serious: Yes (Hospitalization, Disabling)
  Sender: FDA-Public Use
  Company Number: US-MERCK-0510USA04355

PATIENT
  Age: 59 Year
  Sex: Male
  Weight: 91 kg

DRUGS (11)
  1. VIOXX [Suspect]
     Indication: PAIN
     Route: 048
     Dates: start: 20000101
  2. VIOXX [Suspect]
     Route: 048
     Dates: start: 20020101, end: 20040901
  3. LISINOPRIL [Concomitant]
     Route: 065
  4. PRAVACHOL [Concomitant]
     Route: 065
  5. MAGNESIUM (UNSPECIFIED) [Concomitant]
     Route: 065
  6. PLAVIX [Concomitant]
     Route: 065
  7. VITAMINS (UNSPECIFIED) [Concomitant]
     Route: 065
  8. ASCORBIC ACID [Concomitant]
     Route: 065
  9. VITAMIN E [Concomitant]
     Route: 065
  10. COD LIVER OIL [Concomitant]
     Route: 065
  11. GARLIC [Concomitant]
     Route: 065

REACTIONS (2)
  - BACK DISORDER [None]
  - ISCHAEMIC STROKE [None]
